FAERS Safety Report 4290415-7 (Version None)
Quarter: 2004Q1

REPORT INFORMATION
  Report Type: 
  Country: None (occurrence: None)
  Receive Date: 20040209
  Receipt Date: 20040128
  Transmission Date: 20041129
  Serious: Yes (Hospitalization)
  Sender: FDA-Public Use
  Company Number: 2004196890DE

PATIENT
  Age: 31 Year
  Sex: Female
  Weight: 51 kg

DRUGS (4)
  1. BEXTRA [Suspect]
     Indication: BACK PAIN
     Dosage: 20 MG, QD, ORAL
     Route: 048
     Dates: start: 20031125, end: 20031127
  2. OFLOXACIN [Concomitant]
  3. KEIMAX (CEFTIBUTEN) [Concomitant]
  4. ANALGESIC LIQ [Concomitant]

REACTIONS (8)
  - ASCITES [None]
  - CHOLECYSTITIS [None]
  - CYSTITIS [None]
  - HAEMODIALYSIS [None]
  - INFECTION [None]
  - PERICARDIAL EFFUSION [None]
  - PLEURAL EFFUSION [None]
  - RENAL FAILURE ACUTE [None]
